FAERS Safety Report 19910769 (Version 1)
Quarter: 2021Q4

REPORT INFORMATION
  Report Type: Spontaneous
  Country: US (occurrence: US)
  Receive Date: 20211004
  Receipt Date: 20211004
  Transmission Date: 20220303
  Serious: No
  Sender: FDA-Public Use
  Company Number: US-DRREDDYS-SPO/USA/21/0142305

PATIENT
  Age: 22 Year
  Sex: Female

DRUGS (1)
  1. ZENATANE [Suspect]
     Active Substance: ISOTRETINOIN
     Indication: Product used for unknown indication
     Dosage: RMA ISSUE DATE: 16-JUN-2021 12:00:00 AM, 23-JUN-2021 12:00:00 AM, 20-AUG-2021 12:00:00 AM
     Dates: start: 20210616, end: 20210929

REACTIONS (1)
  - Treatment noncompliance [Unknown]
